FAERS Safety Report 6168239-5 (Version None)
Quarter: 2009Q2

REPORT INFORMATION
  Report Type: 
  Country: None (occurrence: None)
  Receive Date: 20090423
  Receipt Date: 20090415
  Transmission Date: 20091009
  Serious: Yes (Hospitalization)
  Sender: FDA-Public Use
  Company Number: GXKR2009GB04672

PATIENT
  Age: 66 Year
  Sex: Male
  Weight: 60 kg

DRUGS (9)
  1. ASPIRIN [Suspect]
     Indication: ATRIAL FIBRILLATION
     Dosage: 300 MG, QD, ORAL
     Route: 048
     Dates: start: 20071129, end: 20090324
  2. DICLOFENAC (NGX) (DICLOFENAC) [Suspect]
     Indication: RHEUMATOID ARTHRITIS
     Dosage: 75 MG, BID, ORAL
     Route: 048
     Dates: start: 20090203, end: 20090324
  3. ADCAL-D3 (CALCIUM CARBONATE, COLECALCIFEROL) [Concomitant]
  4. ATENOLOL [Concomitant]
  5. DIGOXIN [Concomitant]
  6. FOLIC ACID [Concomitant]
  7. ACETAMINOPHEN [Concomitant]
  8. SIMVASTATIN [Concomitant]
  9. TRAMADOL HCL [Concomitant]

REACTIONS (2)
  - DUODENAL ULCER PERFORATION [None]
  - GASTROINTESTINAL HAEMORRHAGE [None]
